FAERS Safety Report 4364299-2 (Version None)
Quarter: 2004Q2

REPORT INFORMATION
  Report Type: 
  Country: None (occurrence: None)
  Receive Date: 20040525
  Receipt Date: 20040212
  Transmission Date: 20050107
  Serious: Yes (Other)
  Sender: FDA-Public Use
  Company Number: PHEH2004US02089

PATIENT
  Age: 49 Year
  Sex: Female
  Weight: 73 kg

DRUGS (13)
  1. ZOMETA [Suspect]
     Indication: BREAST CANCER METASTATIC
     Dosage: 4 MG MONTHLY
     Route: 042
     Dates: start: 20020601
  2. PAXIL [Concomitant]
  3. VALTREX [Concomitant]
  4. PREVACID [Concomitant]
  5. COMPAZINE [Concomitant]
  6. TAMOXIFEN CITRATE [Concomitant]
  7. LETROZOLE [Concomitant]
  8. TAXOTERE [Concomitant]
  9. GEMZAR [Concomitant]
  10. VINORELBINE TARTRATE [Concomitant]
  11. SEREVENT [Concomitant]
  12. FLOVENT [Concomitant]
  13. COUMADIN [Concomitant]

REACTIONS (12)
  - BONE DISORDER [None]
  - FEELING ABNORMAL [None]
  - GINGIVAL BLEEDING [None]
  - GINGIVAL INFECTION [None]
  - GINGIVAL RECESSION [None]
  - ORAL DISCOMFORT [None]
  - ORAL PAIN [None]
  - PAIN EXACERBATED [None]
  - PERIODONTAL DISEASE [None]
  - TOOTH DISORDER [None]
  - TOOTH INFECTION [None]
  - TOOTHACHE [None]
